FAERS Safety Report 4591621-4 (Version None)
Quarter: 2005Q1

REPORT INFORMATION
  Report Type: 
  Country: None (occurrence: None)
  Receive Date: 20050225
  Receipt Date: 20050218
  Transmission Date: 20050727
  Serious: Yes (Hospitalization)
  Sender: FDA-Public Use
  Company Number: PHRM2005FR00891

PATIENT
  Age: 63 Year
  Sex: Male

DRUGS (3)
  1. ESIDRIX [Suspect]
     Indication: ESSENTIAL HYPERTENSION
     Route: 048
  2. ALDACTONE [Concomitant]
     Indication: ESSENTIAL HYPERTENSION
     Dosage: 25 MG, QD
     Route: 048
  3. LASILIX [Concomitant]
     Indication: ESSENTIAL HYPERTENSION
     Dosage: 375 MG/DAY
     Route: 048

REACTIONS (5)
  - BLOOD CREATININE INCREASED [None]
  - BLOOD UREA INCREASED [None]
  - HYPOTENSION [None]
  - RENAL FAILURE ACUTE [None]
  - TACHYCARDIA [None]
